FAERS Safety Report 9076274 (Version 1)
Quarter: 2013Q1

REPORT INFORMATION
  Report Type: Report from Study
  Country: US (occurrence: US)
  Receive Date: 20130129
  Receipt Date: 20130129
  Transmission Date: 20140127
  Serious: No
  Sender: FDA-Public Use
  Company Number: US-ABBOTT-12P-163-0946885-00

PATIENT
  Age: 57 Year
  Sex: Female

DRUGS (8)
  1. HUMIRA 40 MG/0.8 ML PEN [Suspect]
     Indication: RHEUMATOID ARTHRITIS
     Dates: start: 20120312
  2. DIOVAN [Concomitant]
     Indication: HYPERTENSION
     Dosage: 160MG DAILY
  3. BYSTOLIC [Concomitant]
     Indication: BLOOD PRESSURE
  4. MOBIC [Concomitant]
     Indication: PAIN
     Dosage: 7.5MG DAILY
  5. FOLIC ACID [Concomitant]
     Indication: PRODUCT USED FOR UNKNOWN INDICATION
     Dosage: 1MG DAILY
  6. EFFEXOR [Concomitant]
     Indication: DEPRESSION
     Dosage: 75MG DAILY
  7. PLAQUENIL [Concomitant]
     Indication: PAIN
  8. VITAMINS [Concomitant]
     Indication: PRODUCT USED FOR UNKNOWN INDICATION
     Dosage: DAILY

REACTIONS (1)
  - Epistaxis [Recovered/Resolved]
